FAERS Safety Report 5961142-2 (Version None)
Quarter: 2008Q4

REPORT INFORMATION
  Report Type: 
  Country: None (occurrence: None)
  Receive Date: 20081119
  Receipt Date: 20081110
  Transmission Date: 20090506
  Serious: Yes (Hospitalization)
  Sender: FDA-Public Use
  Company Number: 2008AL011717

PATIENT
  Age: 34 Year
  Sex: Male

DRUGS (3)
  1. OXYCODONE HCL [Suspect]
     Indication: ANALGESIA
     Dosage: 40 MG,
  2. CONTROLLED-RELEASE OXYCODONE [Concomitant]
  3. TRAMADOL HCL [Concomitant]

REACTIONS (2)
  - CHOLELITHIASIS [None]
  - HEPATITIS CHOLESTATIC [None]
